FAERS Safety Report 8004843-7 (Version None)
Quarter: 2011Q4

REPORT INFORMATION
  Report Type: 
  Country: None (occurrence: None)
  Receive Date: 20111223
  Receipt Date: 20111223
  Transmission Date: 20120403
  Serious: Yes (Life-Threatening, Hospitalization)
  Sender: FDA-Public Use
  Company Number: None

PATIENT
  Age: 64 Year
  Sex: Female
  Weight: 78.017 kg

DRUGS (1)
  1. SIMVASTATIN [Suspect]
     Dosage: 20 MG
     Route: 048
     Dates: start: 20111117, end: 20111118

REACTIONS (4)
  - VOMITING [None]
  - HYPOVOLAEMIA [None]
  - ANGINA PECTORIS [None]
  - DIARRHOEA [None]
